FAERS Safety Report 8850434 (Version 2)
Quarter: 2012Q4

REPORT INFORMATION
  Report Type: Report from Study
  Country: VE (occurrence: VE)
  Receive Date: 20121019
  Receipt Date: 20121025
  Transmission Date: 20130627
  Serious: Yes (Hospitalization)
  Sender: FDA-Public Use
  Company Number: VE-ABBOTT-12P-178-0995567-00

PATIENT
  Sex: Female

DRUGS (1)
  1. HUMIRA [Suspect]
     Indication: RHEUMATOID ARTHRITIS
     Route: 058

REACTIONS (7)
  - Lung disorder [Recovering/Resolving]
  - Thrombosis [Recovering/Resolving]
  - Spleen disorder [Unknown]
  - Mass [Unknown]
  - Pyrexia [Unknown]
  - Nasopharyngitis [Unknown]
  - Pain [Unknown]
